FAERS Safety Report 15688184 (Version 2)
Quarter: 2019Q4

REPORT INFORMATION
  Report Type: Spontaneous
  Country: GB (occurrence: GB)
  Receive Date: 20181205
  Receipt Date: 20191231
  Transmission Date: 20200122
  Serious: Yes (Other)
  Sender: FDA-Public Use
  Company Number: GB-AMGEN-GBRSP2018170912

PATIENT
  Age: 56 Year
  Sex: Female

DRUGS (1)
  1. XGEVA [Suspect]
     Active Substance: DENOSUMAB
     Indication: BREAST CANCER
     Dosage: RECEIVED 27 CYCLES
     Route: 065
     Dates: start: 20151207, end: 20180316

REACTIONS (4)
  - Exposed bone in jaw [Unknown]
  - Gingival recession [Unknown]
  - Toothache [Unknown]
  - Osteonecrosis of jaw [Unknown]

NARRATIVE: CASE EVENT DATE: 20180316
